FAERS Safety Report 4771952-5 (Version None)
Quarter: 2005Q3

REPORT INFORMATION
  Report Type: 
  Country: None (occurrence: None)
  Receive Date: 20050916
  Receipt Date: 20050908
  Transmission Date: 20060218
  Serious: Yes (Life-Threatening, Hospitalization)
  Sender: FDA-Public Use
  Company Number: BE-BRISTOL-MYERS SQUIBB COMPANY-13112511

PATIENT
  Age: 61 Year
  Sex: Female

DRUGS (3)
  1. CETUXIMAB [Suspect]
     Indication: SQUAMOUS CELL CARCINOMA
     Dosage: ON 31-AUG-2005 MOST RECENT INFUSION (8TH INFUSION)
     Route: 041
     Dates: start: 20050712
  2. CISPLATIN [Suspect]
     Indication: SQUAMOUS CELL CARCINOMA
     Dosage: ON 23-AUG-2005-MOST RECENT INFUSION (3RD INFUSION).
     Route: 042
     Dates: start: 20050712
  3. FLUOROURACIL [Suspect]
     Indication: SQUAMOUS CELL CARCINOMA
     Dosage: ON 28-AUG-2005 MOST RECENT INFUSION (3RD INFUSION).
     Route: 042
     Dates: start: 20050712

REACTIONS (5)
  - DRUG TOXICITY [None]
  - FATIGUE [None]
  - HYPOKALAEMIA [None]
  - HYPOMAGNESAEMIA [None]
  - HYPOPHOSPHATAEMIA [None]
